FAERS Safety Report 7797237-0 (Version None)
Quarter: 2011Q4

REPORT INFORMATION
  Report Type: 
  Country: None (occurrence: None)
  Receive Date: 20111005
  Receipt Date: 20110928
  Transmission Date: 20120403
  Serious: Yes (Death)
  Sender: FDA-Public Use
  Company Number: PHHY2011CL86095

PATIENT
  Sex: Female

DRUGS (1)
  1. VALSARTAN [Suspect]
     Dosage: 80 MG

REACTIONS (1)
  - DEATH [None]
